FAERS Safety Report 7161751-1 (Version None)
Quarter: 2010Q4

REPORT INFORMATION
  Report Type: 
  Country: None (occurrence: None)
  Receive Date: 20101201
  Receipt Date: 20101115
  Transmission Date: 20110411
  Serious: Yes (Other)
  Sender: FDA-Public Use
  Company Number: 2010BI040527

PATIENT
  Age: 57 Year
  Sex: Female

DRUGS (15)
  1. ZEVALIN [Suspect]
     Indication: FOLLICLE CENTRE LYMPHOMA, FOLLICULAR GRADE I, II, III STAGE IV
     Dosage: 818 MBQ; 1X; IV
     Route: 042
     Dates: start: 20091201, end: 20091208
  2. RITUXIMAB [Concomitant]
  3. OTHER ANALGESICS AND ANTIPYRETICS [Concomitant]
  4. ANTIHISTAMINES [Concomitant]
  5. FLUCONAZOLE [Concomitant]
  6. ADENOCK [Concomitant]
  7. ADALAT CC [Concomitant]
  8. LIPITOR [Concomitant]
  9. BAKTAR [Concomitant]
  10. MUCOSTA [Concomitant]
  11. FAMOTIDINE D [Concomitant]
  12. ACICLOVIN [Concomitant]
  13. FLUDEOXYGLUCOSE [Concomitant]
  14. FLUDARABINE PHOSPHATE [Concomitant]
  15. MITOXANTRONE [Concomitant]

REACTIONS (11)
  - ALANINE AMINOTRANSFERASE INCREASED [None]
  - ASPARTATE AMINOTRANSFERASE INCREASED [None]
  - BLOOD BILIRUBIN INCREASED [None]
  - BLOOD LACTATE DEHYDROGENASE INCREASED [None]
  - HAEMATOCRIT DECREASED [None]
  - HAEMOGLOBIN DECREASED [None]
  - LYMPHOCYTE PERCENTAGE DECREASED [None]
  - NEUTROPHIL PERCENTAGE INCREASED [None]
  - PLATELET COUNT DECREASED [None]
  - PROTEIN TOTAL DECREASED [None]
  - RED BLOOD CELL COUNT DECREASED [None]
